FAERS Safety Report 12659657 (Version 9)
Quarter: 2020Q3

REPORT INFORMATION
  Report Type: Report from Study
  Country: JP (occurrence: JP)
  Receive Date: 20160817
  Receipt Date: 20200831
  Transmission Date: 20201102
  Serious: Yes (Death, Hospitalization, Other)
  Sender: FDA-Public Use
  Company Number: JP-INCYTE CORPORATION-2016IN004791

PATIENT

DRUGS (5)
  1. HYDREA [Concomitant]
     Active Substance: HYDROXYUREA
     Indication: MYELOFIBROSIS
     Dosage: UNK
     Route: 048
     Dates: start: 20141203, end: 20160615
  2. JAKAVI [Suspect]
     Active Substance: RUXOLITINIB
     Dosage: 5 MG, BID
     Route: 048
     Dates: start: 20141204
  3. JAKAVI [Suspect]
     Active Substance: RUXOLITINIB
     Dosage: 5 MG, BID
     Route: 048
     Dates: start: 20160615, end: 20160712
  4. JAKAVI [Suspect]
     Active Substance: RUXOLITINIB
     Indication: MYELOFIBROSIS
     Dosage: 7.5 MG, BID
     Route: 048
     Dates: start: 20141022, end: 20141203
  5. ZOMETA [Concomitant]
     Active Substance: ZOLEDRONIC ACID
     Indication: MYELOFIBROSIS
     Dosage: UNK
     Route: 041
     Dates: start: 20141217, end: 20160712

REACTIONS (11)
  - Anaemia [Not Recovered/Not Resolved]
  - Dyspepsia [Not Recovered/Not Resolved]
  - Malaise [Not Recovered/Not Resolved]
  - Bone marrow failure [Unknown]
  - Cerebral haemorrhage [Fatal]
  - Oedema [Not Recovered/Not Resolved]
  - Myelofibrosis [Fatal]
  - Urinary tract infection [Not Recovered/Not Resolved]
  - Fatigue [Unknown]
  - White blood cell count increased [Unknown]
  - Hepatic function abnormal [Not Recovered/Not Resolved]

NARRATIVE: CASE EVENT DATE: 20141025
